FAERS Safety Report 5851908-1 (Version None)
Quarter: 2008Q3

REPORT INFORMATION
  Report Type: 
  Country: None (occurrence: None)
  Receive Date: 20080819
  Receipt Date: 20080808
  Transmission Date: 20090109
  Serious: Yes (Hospitalization)
  Sender: FDA-Public Use
  Company Number: ENTC2008-0235

PATIENT
  Age: 84 Year
  Sex: Female

DRUGS (1)
  1. STALEVO 100 [Suspect]
     Indication: PARKINSON'S DISEASE
     Dosage: 150/37.5/200 MG; ORAL
     Route: 048

REACTIONS (3)
  - CONDITION AGGRAVATED [None]
  - DYSPHAGIA [None]
  - PARKINSONISM [None]
